FAERS Safety Report 25109792 (Version 1)
Quarter: 2025Q1

REPORT INFORMATION
  Report Type: Spontaneous
  Country: US (occurrence: US)
  Receive Date: 20250324
  Receipt Date: 20250324
  Transmission Date: 20250409
  Serious: No
  Sender: SANOFI AVENTIS
  Company Number: US-SA-2025SA082730

PATIENT
  Sex: Female
  Weight: 96.1 kg

DRUGS (22)
  1. DUPIXENT [Suspect]
     Active Substance: DUPILUMAB
     Indication: Asthma
     Dosage: 300 MG, QOW
     Route: 058
     Dates: start: 20231102
  2. OZEMPIC [Concomitant]
     Active Substance: SEMAGLUTIDE
  3. VITAMIN B12 [Concomitant]
     Active Substance: CYANOCOBALAMIN
  4. VITAMIN D2 [Concomitant]
     Active Substance: ERGOCALCIFEROL
  5. MAGNESIUM [MAGNESIUM CHELATE] [Concomitant]
  6. RETINOL [Concomitant]
     Active Substance: RETINOL
  7. QUERCISORB QR [Concomitant]
  8. BIFIDOBACTERIUM LONGUM\LACTOBACILLUS ACIDOPHILUS\LACTOBACILLUS RHAMNOS [Concomitant]
     Active Substance: BIFIDOBACTERIUM LONGUM\LACTOBACILLUS ACIDOPHILUS\LACTOBACILLUS RHAMNOSUS
  9. AZELASTINE HYDROCHLORIDE\FLUTICASONE PROPIONATE [Concomitant]
     Active Substance: AZELASTINE HYDROCHLORIDE\FLUTICASONE PROPIONATE
  10. FLONASE ALLERGY RELIEF [Concomitant]
     Active Substance: FLUTICASONE PROPIONATE
  11. ALBUTEROL SULFATE [Concomitant]
     Active Substance: ALBUTEROL SULFATE
  12. ALBUTEROL SULFATE [Concomitant]
     Active Substance: ALBUTEROL SULFATE
  13. BREO ELLIPTA [Concomitant]
     Active Substance: FLUTICASONE FUROATE\VILANTEROL TRIFENATATE
  14. SYNTHROID [Concomitant]
     Active Substance: LEVOTHYROXINE SODIUM
  15. CLOBETASOL PROPIONATE [Concomitant]
     Active Substance: CLOBETASOL PROPIONATE
  16. MONTELUKAST SODIUM [Concomitant]
     Active Substance: MONTELUKAST SODIUM
  17. OMEPRAZOLE [Concomitant]
     Active Substance: OMEPRAZOLE
  18. CELECOXIB [Concomitant]
     Active Substance: CELECOXIB
  19. LEVOTHYROXINE SODIUM [Concomitant]
     Active Substance: LEVOTHYROXINE SODIUM
  20. CYCLOBENZAPRINE HYDROCHLORIDE [Concomitant]
     Active Substance: CYCLOBENZAPRINE HYDROCHLORIDE
  21. FAMOTIDINE [Concomitant]
     Active Substance: FAMOTIDINE
  22. CEPHALEXIN [Concomitant]
     Active Substance: CEPHALEXIN

REACTIONS (2)
  - Weight decreased [Recovered/Resolved]
  - Upper-airway cough syndrome [Recovered/Resolved]
